FAERS Safety Report 24167769 (Version 1)
Quarter: 2024Q3

REPORT INFORMATION
  Report Type: Spontaneous
  Country: CA (occurrence: CA)
  Receive Date: 20240802
  Receipt Date: 20240802
  Transmission Date: 20241017
  Serious: Yes (Other)
  Sender: PFIZER
  Company Number: CA-PFIZER INC-PV202400094358

PATIENT
  Age: 67 Year
  Sex: Male
  Weight: 80.9 kg

DRUGS (3)
  1. ZIRABEV [Suspect]
     Active Substance: BEVACIZUMAB-BVZR
     Indication: Glioblastoma
     Dosage: 820MG Q2WEEKS
     Route: 042
     Dates: start: 20240605
  2. ZIRABEV [Suspect]
     Active Substance: BEVACIZUMAB-BVZR
     Dosage: 820MG Q2WEEKS
     Route: 042
     Dates: start: 20240717
  3. ZIRABEV [Suspect]
     Active Substance: BEVACIZUMAB-BVZR
     Dosage: 820MG Q2WEEKS
     Route: 042
     Dates: start: 20240717

REACTIONS (3)
  - Seizure [Not Recovered/Not Resolved]
  - Tremor [Unknown]
  - Blood pressure diastolic increased [Unknown]

NARRATIVE: CASE EVENT DATE: 20240101
